FAERS Safety Report 16608396 (Version 1)
Quarter: 2019Q3

REPORT INFORMATION
  Report Type: Spontaneous
  Country: US (occurrence: US)
  Receive Date: 20190719
  Receipt Date: 20190719
  Transmission Date: 20191004
  Serious: No
  Sender: FDA-Public Use
  Company Number: None

PATIENT
  Age: 29 Year
  Sex: Female
  Weight: 67.5 kg

DRUGS (1)
  1. SOLOSEC [Suspect]
     Active Substance: SECNIDAZOLE
     Indication: BACTERIAL VAGINOSIS
     Dosage: ?          QUANTITY:1 GRANULAR;?
     Route: 048
     Dates: start: 20190718, end: 20190718

REACTIONS (4)
  - Nausea [None]
  - Dysgeusia [None]
  - Lethargy [None]
  - Headache [None]

NARRATIVE: CASE EVENT DATE: 20190719
